FAERS Safety Report 14946671 (Version 1)
Quarter: 2018Q2

REPORT INFORMATION
  Report Type: Spontaneous
  Country: CN (occurrence: CN)
  Receive Date: 20180529
  Receipt Date: 20180529
  Transmission Date: 20180711
  Serious: Yes (Other)
  Sender: FDA-Public Use
  Company Number: CN-SA-2018SA123868

PATIENT
  Age: 39 Year
  Sex: Female

DRUGS (9)
  1. CISPLATIN. [Suspect]
     Active Substance: CISPLATIN
     Dosage: UNK UNK,UNK
     Route: 065
     Dates: start: 201509, end: 201601
  2. CYCLOPHOSPHAMIDE. [Suspect]
     Active Substance: CYCLOPHOSPHAMIDE
     Indication: INVASIVE DUCTAL BREAST CARCINOMA
     Dosage: 500 MG/M2,UNK
     Route: 065
     Dates: start: 201312, end: 201403
  3. CISPLATIN. [Suspect]
     Active Substance: CISPLATIN
     Indication: INVASIVE DUCTAL BREAST CARCINOMA
     Dosage: UNK UNK,UNK
     Route: 065
     Dates: start: 201411, end: 201504
  4. CAPECITABINE. [Suspect]
     Active Substance: CAPECITABINE
     Indication: INVASIVE DUCTAL BREAST CARCINOMA
     Dosage: UNK UNK,UNK
     Route: 065
     Dates: start: 201410, end: 201411
  5. PACLITAXEL. [Suspect]
     Active Substance: PACLITAXEL
     Indication: INVASIVE DUCTAL BREAST CARCINOMA
     Dosage: UNK UNK,UNK
     Route: 065
     Dates: start: 201407, end: 201409
  6. FLUOROURACIL. [Suspect]
     Active Substance: FLUOROURACIL
     Indication: INVASIVE DUCTAL BREAST CARCINOMA
     Dosage: 500 MG/M2,UNK
     Route: 065
     Dates: start: 201312, end: 201403
  7. DOCETAXEL. [Suspect]
     Active Substance: DOCETAXEL
     Dosage: 75 MG/M2,UNK
     Route: 065
     Dates: start: 201312, end: 201403
  8. EPIRUBICIN [Suspect]
     Active Substance: EPIRUBICIN
     Indication: INVASIVE DUCTAL BREAST CARCINOMA
     Dosage: 100 MG/M2,UNK
     Route: 065
     Dates: start: 201312, end: 201403
  9. GEMCITABINE [Suspect]
     Active Substance: GEMCITABINE\GEMCITABINE HYDROCHLORIDE
     Indication: INVASIVE DUCTAL BREAST CARCINOMA
     Dosage: UNK UNK,UNK
     Route: 065
     Dates: start: 201411, end: 201504

REACTIONS (7)
  - Metastases to central nervous system [Not Recovered/Not Resolved]
  - Metastases to lung [Not Recovered/Not Resolved]
  - Breast cancer [Not Recovered/Not Resolved]
  - Brain oedema [Not Recovered/Not Resolved]
  - Headache [Not Recovered/Not Resolved]
  - Drug ineffective [Unknown]
  - Epilepsy [Not Recovered/Not Resolved]
